FAERS Safety Report 17169558 (Version 2)
Quarter: 2020Q1

REPORT INFORMATION
  Report Type: Spontaneous
  Country: CL (occurrence: CL)
  Receive Date: 20191218
  Receipt Date: 20200104
  Transmission Date: 20200409
  Serious: Yes (Other)
  Sender: FDA-Public Use
  Company Number: NVSC2019CL069485

PATIENT
  Age: 53 Year
  Sex: Female

DRUGS (6)
  1. TEGRETAL [Suspect]
     Active Substance: CARBAMAZEPINE
     Indication: PRODUCT USED FOR UNKNOWN INDICATION
     Dosage: 200 MG, Q12H
     Route: 065
  2. GILENYA [Suspect]
     Active Substance: FINGOLIMOD HYDROCHLORIDE
     Indication: MULTIPLE SCLEROSIS
     Dosage: 0.5 MG
     Route: 048
     Dates: start: 20140925, end: 20170105
  3. DOMPERIDONE [Concomitant]
     Active Substance: DOMPERIDONE
     Indication: PRODUCT USED FOR UNKNOWN INDICATION
     Dosage: 10 MG
     Route: 065
  4. IMIPRAMINE [Concomitant]
     Active Substance: IMIPRAMINE
     Indication: PRODUCT USED FOR UNKNOWN INDICATION
     Dosage: 50 MG
     Route: 065
  5. ESOMEPRAZOL [Suspect]
     Active Substance: ESOMEPRAZOLE
     Indication: PRODUCT USED FOR UNKNOWN INDICATION
     Dosage: 40 MG
     Route: 065
  6. AMITRIPTYLINE [Concomitant]
     Active Substance: AMITRIPTYLINE
     Indication: PRODUCT USED FOR UNKNOWN INDICATION
     Dosage: 50 MG
     Route: 065

REACTIONS (9)
  - T-lymphocyte count decreased [Unknown]
  - White blood cell count abnormal [Unknown]
  - Lymphopenia [Unknown]
  - Lymphocyte count abnormal [Unknown]
  - CD4 lymphocytes abnormal [Unknown]
  - Pachymeningitis [Unknown]
  - CD4/CD8 ratio decreased [Unknown]
  - CD8 lymphocytes abnormal [Unknown]
  - Lymphocyte count decreased [Unknown]

NARRATIVE: CASE EVENT DATE: 20161108
